FAERS Safety Report 9239741 (Version 1)
Quarter: 2013Q2

REPORT INFORMATION
  Report Type: Spontaneous
  Country: US (occurrence: US)
  Receive Date: 20130418
  Receipt Date: 20130418
  Transmission Date: 20140414
  Serious: Yes (Hospitalization, Other)
  Sender: FDA-Public Use
  Company Number: US-PFIZER INC-2013113218

PATIENT
  Age: 24 Year
  Sex: Female

DRUGS (10)
  1. CLEOCIN [Suspect]
     Indication: ACNE
     Dosage: 1%
     Route: 061
  2. HYDROCORTISONE SODIUM SUCCINATE [Suspect]
     Indication: INFLAMMATORY BOWEL DISEASE
     Dosage: 100 MG, 3X/DAY
     Route: 042
  3. ISOPROPYL ALCOHOL [Concomitant]
     Indication: ACNE
     Dosage: 43 ML OF 70%
  4. PROPYLENE GLYCOL [Concomitant]
     Indication: ACNE
     Dosage: 3 ML
  5. BENZOYL PEROXIDE [Concomitant]
     Indication: ACNE
     Dosage: 5 %, 1X/DAY (EVERY EVENING)
  6. GARAMYCIN [Concomitant]
     Dosage: 60 MG, (EVERY EIGHT HOURS)
     Route: 042
  7. CHLORAMPHENICOL SODIUM SUCCINATE [Concomitant]
     Indication: DIARRHOEA INFECTIOUS
     Dosage: 500 MG, 4X/DAY
     Route: 042
  8. VANCOCIN HYDROCHLORIDE [Concomitant]
     Indication: PSEUDOMEMBRANOUS COLITIS
     Dosage: 250 MG, 3X/DAY
     Route: 048
  9. INTRALIPID [Concomitant]
  10. FREAMINE [Concomitant]

REACTIONS (2)
  - Pseudomembranous colitis [Recovered/Resolved]
  - Pancreatitis [Recovered/Resolved]
